FAERS Safety Report 9319441 (Version 1)
Quarter: 2013Q2

REPORT INFORMATION
  Report Type: Spontaneous
  Country: US (occurrence: US)
  Receive Date: 20130530
  Receipt Date: 20130530
  Transmission Date: 20140414
  Serious: Yes (Hospitalization)
  Sender: FDA-Public Use
  Company Number: US-GLAXOSMITHKLINE-A0982911A

PATIENT
  Age: 61 Year
  Sex: Female

DRUGS (1)
  1. FLOLAN [Suspect]
     Dosage: 12NGKM CONTINUOUS
     Route: 065
     Dates: start: 20110622

REACTIONS (2)
  - Infusion site infection [Unknown]
  - Bacterial infection [Unknown]
